FAERS Safety Report 21489106 (Version 1)
Quarter: 2022Q4

REPORT INFORMATION
  Report Type: Spontaneous
  Country: US (occurrence: US)
  Receive Date: 20221021
  Receipt Date: 20221021
  Transmission Date: 20230112
  Serious: No
  Sender: FDA-Public Use
  Company Number: US-CELLTRION INC.-2022US003979

PATIENT

DRUGS (18)
  1. INFLECTRA [Suspect]
     Active Substance: INFLIXIMAB-DYYB
     Indication: Product used for unknown indication
     Dosage: 5 MILLIGRAM/KILOGRAM, Q2WEEKS
     Route: 065
  2. INFLECTRA [Suspect]
     Active Substance: INFLIXIMAB-DYYB
     Dosage: 10 MG/KG EVERY 8 WEEKS
  3. ASCORBIC ACID [Concomitant]
     Active Substance: ASCORBIC ACID
  4. AZATHIOPRINE [Concomitant]
     Active Substance: AZATHIOPRINE
  5. BUDESONIDE [Concomitant]
     Active Substance: BUDESONIDE
  6. CARVEDILOL [Concomitant]
     Active Substance: CARVEDILOL
  7. CHOLECALCIFEROL [Concomitant]
     Active Substance: CHOLECALCIFEROL
  8. CYANOCOBALAMIN [Concomitant]
     Active Substance: CYANOCOBALAMIN
  9. CYCLOBENZAPRINE [Concomitant]
     Active Substance: CYCLOBENZAPRINE
  10. FLONASE [Concomitant]
     Active Substance: FLUTICASONE PROPIONATE
  11. HYDRALAZINE [Concomitant]
     Active Substance: HYDRALAZINE HYDROCHLORIDE
  12. LISINOPRIL [Concomitant]
     Active Substance: LISINOPRIL
  13. LORATADINE [Concomitant]
     Active Substance: LORATADINE
  14. MELATONIN [Concomitant]
     Active Substance: MELATONIN
  15. METRONIDAZOLE [Concomitant]
     Active Substance: METRONIDAZOLE
  16. OMEPRAZOLE [Concomitant]
     Active Substance: OMEPRAZOLE
  17. OXYCODONE AND ACETAMINOPHEN [Concomitant]
     Active Substance: ACETAMINOPHEN\OXYCODONE HYDROCHLORIDE
  18. POTASSIUM GLUCONATE [Concomitant]
     Active Substance: POTASSIUM GLUCONATE

REACTIONS (1)
  - Unevaluable event [Unknown]
